FAERS Safety Report 17792715 (Version 1)
Quarter: 2020Q2

REPORT INFORMATION
  Report Type: Spontaneous
  Country: GB (occurrence: GB)
  Receive Date: 20200515
  Receipt Date: 20200515
  Transmission Date: 20200714
  Serious: Yes (Other)
  Sender: FDA-Public Use
  Company Number: GB-MYLANLABS-2020M1047286

PATIENT
  Age: 20 Year
  Sex: Male
  Weight: 80 kg

DRUGS (1)
  1. ISOTRETINOIN. [Suspect]
     Active Substance: ISOTRETINOIN
     Indication: ACNE
     Dosage: 60 MILLIGRAM, QD
     Route: 048
     Dates: start: 20200203, end: 20200417

REACTIONS (3)
  - Erectile dysfunction [Recovered/Resolved]
  - Anxiety [Unknown]
  - Lip dry [Unknown]

NARRATIVE: CASE EVENT DATE: 20200306
